FAERS Safety Report 25279118 (Version 2)
Quarter: 2025Q3

REPORT INFORMATION
  Report Type: Report from Study
  Country: IN (occurrence: IN)
  Receive Date: 20250507
  Receipt Date: 20250803
  Transmission Date: 20251021
  Serious: Yes (Other)
  Sender: ALEXION PHARMACEUTICALS
  Company Number: IN-AstraZeneca-CH-00859845A

PATIENT
  Age: 56 Year
  Sex: Male
  Weight: 66 kg

DRUGS (1)
  1. DURVALUMAB [Suspect]
     Active Substance: DURVALUMAB
     Indication: Immunochemotherapy
     Dosage: 1500 MILLIGRAM, Q3W
     Dates: start: 202412

REACTIONS (3)
  - Choking [Not Recovered/Not Resolved]
  - Abdominal distension [Not Recovered/Not Resolved]
  - Fatigue [Recovering/Resolving]
